FAERS Safety Report 10074340 (Version 1)
Quarter: 2014Q2

REPORT INFORMATION
  Report Type: Spontaneous
  Country: US (occurrence: US)
  Receive Date: 20140411
  Receipt Date: 20140411
  Transmission Date: 20141212
  Serious: No
  Sender: FDA-Public Use
  Company Number: US-SANOFI-AVENTIS-2013SA052771

PATIENT
  Age: 68 Year
  Sex: Female

DRUGS (3)
  1. ALLEGRA D [Suspect]
     Indication: COUGH
     Dosage: TAKEN FROM- 6 DAYS AGO
     Route: 065
  2. ALLEGRA D [Suspect]
     Indication: SNEEZING
     Dosage: TAKEN FROM- 6 DAYS AGO
     Route: 065
  3. ALLEGRA D [Suspect]
     Indication: RHINORRHOEA
     Dosage: TAKEN FROM- 6 DAYS AGO
     Route: 065

REACTIONS (1)
  - Drug ineffective [Unknown]
